FAERS Safety Report 6013474-X (Version None)
Quarter: 2008Q4

REPORT INFORMATION
  Report Type: 
  Country: None (occurrence: None)
  Receive Date: 20081216
  Receipt Date: 20071126
  Transmission Date: 20090506
  Serious: Yes (Other)
  Sender: FDA-Public Use
  Company Number: US-WYE-H01454907

PATIENT
  Age: 65 Year
  Sex: Female
  Weight: 62.65 kg

DRUGS (10)
  1. EFFEXOR XR [Suspect]
     Indication: DEPRESSION
     Dosage: 37.5 MG 1X PER 1 PRN, ORAL ; ORAL
     Route: 048
     Dates: start: 20071001, end: 20071019
  2. EFFEXOR XR [Suspect]
     Indication: DEPRESSION
     Dosage: 37.5 MG 1X PER 1 PRN, ORAL ; ORAL
     Route: 048
     Dates: start: 20071022
  3. FLAGYL [Suspect]
     Indication: DIVERTICULITIS
     Dosage: 500 MG 2X PER 1 DAY
     Dates: start: 20071001
  4. LIBRAX [Concomitant]
  5. LEVOXYL [Concomitant]
  6. CALCIUM (CALCIUM) [Concomitant]
  7. GLUCOSAMINE W/CHONDROITIN SULFATE (ASCORBIC ACID/CHRONDROITIN SULFATE/ [Concomitant]
  8. ACETYLSALICYLIC ACID SRT [Concomitant]
  9. MULTIVITAMINS (ASCORBIC ACID/ERGOCALCIFEROL/FOLIC ACID/NICOTINAMIDE/PA [Concomitant]
  10. VITAMIN D [Concomitant]

REACTIONS (3)
  - CONDITION AGGRAVATED [None]
  - DIVERTICULITIS [None]
  - TINNITUS [None]
